FAERS Safety Report 19072837 (Version 1)
Quarter: 2021Q1

REPORT INFORMATION
  Report Type: Spontaneous
  Country: US (occurrence: US)
  Receive Date: 20210330
  Receipt Date: 20210330
  Transmission Date: 20210420
  Serious: Yes (Other)
  Sender: FDA-Public Use
  Company Number: US-GLAXOSMITHKLINE-US2021GSK065218

PATIENT
  Sex: Female

DRUGS (8)
  1. ZANTAC [Suspect]
     Active Substance: RANITIDINE HYDROCHLORIDE
     Indication: GASTRIC DISORDER
  2. ZANTAC [Suspect]
     Active Substance: RANITIDINE HYDROCHLORIDE
     Indication: BLOOD DISORDER
     Dosage: UNKNOWN AT THIS TIME, QD
     Route: 065
     Dates: start: 199501, end: 200501
  3. RANITIDINE. [Suspect]
     Active Substance: RANITIDINE
     Indication: BLOOD DISORDER
     Dosage: UNKNOWN AT THIS TIME, QD
     Route: 065
     Dates: start: 199501, end: 200501
  4. RANITIDINE. [Suspect]
     Active Substance: RANITIDINE
     Indication: BLOOD DISORDER
     Dosage: UNKNOWN AT THIS TIME, QD
     Route: 065
     Dates: start: 199501, end: 200501
  5. ZANTAC [Suspect]
     Active Substance: RANITIDINE HYDROCHLORIDE
     Indication: BLOOD DISORDER
     Dosage: UNKNOWN AT THIS TIME, QD
     Route: 065
     Dates: start: 199501, end: 200501
  6. ZANTAC [Suspect]
     Active Substance: RANITIDINE HYDROCHLORIDE
     Indication: GASTRIC DISORDER
  7. RANITIDINE. [Suspect]
     Active Substance: RANITIDINE
     Indication: GASTRIC DISORDER
  8. RANITIDINE. [Suspect]
     Active Substance: RANITIDINE
     Indication: GASTRIC DISORDER

REACTIONS (2)
  - Renal cancer [Unknown]
  - Prostate cancer [Unknown]
